FAERS Safety Report 9550036 (Version 1)
Quarter: 2013Q3

REPORT INFORMATION
  Report Type: Spontaneous
  Country: GB (occurrence: GB)
  Receive Date: 20130924
  Receipt Date: 20130924
  Transmission Date: 20140515
  Serious: Yes (Other)
  Sender: FDA-Public Use
  Company Number: PHHY2013GB104924

PATIENT
  Age: 66 Year
  Sex: Female
  Weight: 69.85 kg

DRUGS (4)
  1. ALENDRONIC ACID [Suspect]
     Indication: OSTEOPOROSIS
     Dosage: 70 MG, TAKEN FOR YEARS
     Route: 048
  2. NARATRIPTAN [Concomitant]
  3. PROPRANOLOL [Concomitant]
  4. URSOFALK [Concomitant]

REACTIONS (5)
  - Gingival pain [Unknown]
  - Gingival inflammation [Not Recovered/Not Resolved]
  - Gingivitis [Unknown]
  - Gingival injury [Unknown]
  - Osteonecrosis of jaw [Not Recovered/Not Resolved]
